FAERS Safety Report 21328624 (Version 2)
Quarter: 2022Q3

REPORT INFORMATION
  Report Type: Spontaneous
  Country: US (occurrence: US)
  Receive Date: 20220913
  Receipt Date: 20220920
  Transmission Date: 20221027
  Serious: No
  Sender: FDA-Public Use
  Company Number: US-009507513-2208USA010945

PATIENT
  Age: 52 Year
  Sex: Female

DRUGS (3)
  1. STROMECTOL [Suspect]
     Active Substance: IVERMECTIN
     Indication: Dizziness
     Dosage: 12 MG OF IVERMECTIN COMPOUNDED WITH 2000 IU^S OF VITAMIN D3/ 1 TABLET DAILY
     Route: 048
     Dates: start: 20220814
  2. VITAMIN D3 [Suspect]
     Active Substance: CHOLECALCIFEROL
     Dosage: 12 MG IVERMECTIN AND 2000 INTERNATIONAL UNITS (IU^S) OF VITAMIN D3, AT A DOSE OF 1 TABLET DAILY
     Route: 048
  3. PFIZER-BIONTECH COVID-19 VACCINE [Suspect]
     Active Substance: TOZINAMERAN
     Dosage: UNK
     Dates: start: 202109

REACTIONS (3)
  - Vision blurred [Not Recovered/Not Resolved]
  - Product use in unapproved indication [Unknown]
  - Product prescribing issue [Unknown]

NARRATIVE: CASE EVENT DATE: 20220801
